FAERS Safety Report 4684622-9 (Version None)
Quarter: 2005Q2

REPORT INFORMATION
  Report Type: 
  Country: None (occurrence: None)
  Receive Date: 20050603
  Receipt Date: 20050525
  Transmission Date: 20051028
  Serious: Yes (Death, Other)
  Sender: FDA-Public Use
  Company Number: 2005-05-1905

PATIENT
  Age: 70 Year
  Sex: Female

DRUGS (4)
  1. INTRON A [Suspect]
     Indication: GLIOMA
     Dates: start: 20030101
  2. ACBY 135 MG [Concomitant]
  3. VINCRISTINE [Concomitant]
  4. RADIATION THERAPY [Concomitant]

REACTIONS (5)
  - APHASIA [None]
  - CENTRAL NERVOUS SYSTEM LESION [None]
  - INTERSTITIAL LUNG DISEASE [None]
  - PNEUMOCYSTIS JIROVECI PNEUMONIA [None]
  - THROMBOSIS [None]
